FAERS Safety Report 18449782 (Version 3)
Quarter: 2020Q4

REPORT INFORMATION
  Report Type: Spontaneous
  Country: JP (occurrence: JP)
  Receive Date: 20201030
  Receipt Date: 20201209
  Transmission Date: 20210114
  Serious: Yes (Death, Disabling, Other)
  Sender: FDA-Public Use
  Company Number: JP-BRISTOL-MYERS SQUIBB COMPANY-BMS-2020-089608

PATIENT
  Age: 79 Year
  Sex: Female
  Weight: 43.9 kg

DRUGS (6)
  1. ELENTAL [Concomitant]
     Active Substance: AMINO ACIDS\CARBOHYDRATES\MINERALS\SOYBEAN OIL\VITAMINS
     Indication: PRODUCT USED FOR UNKNOWN INDICATION
     Dosage: 80 GRAM, QD
     Route: 048
     Dates: start: 20190816
  2. ALOSENN [SENNOSIDE A+B] [Concomitant]
     Indication: PRODUCT USED FOR UNKNOWN INDICATION
     Dosage: 1 GRAM, Q12H
     Route: 048
     Dates: start: 20190830
  3. PANTETHINE [Concomitant]
     Active Substance: PANTETHINE
     Indication: PRODUCT USED FOR UNKNOWN INDICATION
     Dosage: 0.66 DOSAGE FORM, Q8H
     Route: 048
     Dates: start: 20200617
  4. OPDIVO [Suspect]
     Active Substance: NIVOLUMAB
     Indication: GASTRIC CANCER
     Dosage: 240 MILLIGRAM
     Route: 041
     Dates: start: 20200930, end: 20201009
  5. MIYA-BM [Concomitant]
     Active Substance: CLOSTRIDIUM BUTYRICUM SPORES STRAIN M-55
     Indication: PRODUCT USED FOR UNKNOWN INDICATION
     Dosage: 1 GRAM, Q8H
     Route: 048
     Dates: start: 20190801
  6. MAGMITT [Concomitant]
     Active Substance: MAGNESIUM OXIDE
     Indication: PRODUCT USED FOR UNKNOWN INDICATION
     Dosage: 660 MILLIGRAM, Q8H
     Route: 048
     Dates: start: 20200617

REACTIONS (8)
  - Myositis [Fatal]
  - Cardio-respiratory arrest [Fatal]
  - Fall [Unknown]
  - Hypoglycaemia [Fatal]
  - Malignant neoplasm progression [Fatal]
  - Blood creatine phosphokinase increased [Fatal]
  - Movement disorder [Unknown]
  - Back pain [Unknown]

NARRATIVE: CASE EVENT DATE: 20201002
